FAERS Safety Report 10408515 (Version 1)
Quarter: 2014Q3

REPORT INFORMATION
  Report Type: Spontaneous
  Country: US (occurrence: None)
  Receive Date: 20140822
  Receipt Date: 20140822
  Transmission Date: 20150326
  Serious: Yes (Other)
  Sender: FDA-Public Use
  Company Number: None

PATIENT
  Age: 50 Year
  Sex: Male
  Weight: 80.74 kg

DRUGS (1)
  1. TECHNETIUM TC-99M MPI MDP [Suspect]
     Active Substance: TECHNETIUM TC-99M MEDRONATE
     Indication: LIVER SCAN
     Dosage: VIA I.V.  ONCE  INTO A VEIN
     Route: 042
     Dates: start: 20140818, end: 20140818

REACTIONS (7)
  - Panic reaction [None]
  - Convulsion [None]
  - Headache [None]
  - Lacrimation increased [None]
  - Screaming [None]
  - Coma [None]
  - Tremor [None]

NARRATIVE: CASE EVENT DATE: 20140818
